FAERS Safety Report 4675972-0 (Version None)
Quarter: 2005Q2

REPORT INFORMATION
  Report Type: 
  Country: None (occurrence: None)
  Receive Date: 20050527
  Receipt Date: 20050420
  Transmission Date: 20051028
  Serious: Yes (Other)
  Sender: FDA-Public Use
  Company Number: US-GLAXOSMITHKLINE-A0555030A

PATIENT
  Age: 72 Year
  Sex: Male

DRUGS (9)
  1. WELLBUTRIN [Suspect]
     Dosage: 150MG PER DAY
     Route: 048
     Dates: start: 20050417
  2. DEPAKOTE [Concomitant]
  3. CELEXA [Concomitant]
  4. CELEBREX [Concomitant]
  5. PLAVIX [Concomitant]
  6. VITAMIN E [Concomitant]
  7. VIT C TAB [Concomitant]
  8. AVANDIA [Concomitant]
  9. ALBUTEROL [Concomitant]

REACTIONS (2)
  - HALLUCINATION [None]
  - TREMOR [None]
